FAERS Safety Report 8435431-6 (Version None)
Quarter: 2012Q2

REPORT INFORMATION
  Report Type: 
  Country: None (occurrence: None)
  Receive Date: 20120614
  Receipt Date: 20120605
  Transmission Date: 20120825
  Serious: Yes (Hospitalization)
  Sender: FDA-Public Use
  Company Number: US-VERTEX PHARMACEUTICALS INC.-AE-2012-004947

PATIENT
  Sex: Male

DRUGS (4)
  1. RIBAVIRIN [Concomitant]
     Indication: HEPATITIS C
     Route: 048
     Dates: start: 20120224
  2. INCIVEK [Suspect]
     Indication: HEPATITIS C
     Route: 048
     Dates: start: 20120224, end: 20120518
  3. PEG-INTRON [Concomitant]
     Indication: HEPATITIS C
     Route: 058
     Dates: start: 20120224
  4. INCIVEK [Concomitant]

REACTIONS (14)
  - SYNCOPE [None]
  - MEMORY IMPAIRMENT [None]
  - PALPITATIONS [None]
  - INSOMNIA [None]
  - DYSPNOEA [None]
  - FEELING JITTERY [None]
  - FATIGUE [None]
  - COORDINATION ABNORMAL [None]
  - ANXIETY [None]
  - CONFUSIONAL STATE [None]
  - PANIC ATTACK [None]
  - AFFECT LABILITY [None]
  - CHEST PAIN [None]
  - CLUMSINESS [None]
